FAERS Safety Report 22304526 (Version 1)
Quarter: 2023Q2

REPORT INFORMATION
  Report Type: Spontaneous
  Country: US (occurrence: None)
  Receive Date: 20230509
  Receipt Date: 20230509
  Transmission Date: 20230721
  Serious: Yes (Hospitalization)
  Sender: FDA-Public Use
  Company Number: None

PATIENT
  Age: 60 Year
  Sex: Female

DRUGS (1)
  1. LENALIDOMIDE [Suspect]
     Active Substance: LENALIDOMIDE
     Indication: Plasma cell myeloma
     Dosage: 25MG QD ORAL?
     Route: 048
     Dates: start: 20200409

REACTIONS (5)
  - Dyspnoea [None]
  - Chest pain [None]
  - Atrial thrombosis [None]
  - Cardiac myxoma [None]
  - Metastases to heart [None]

NARRATIVE: CASE EVENT DATE: 20230424
